FAERS Safety Report 19252246 (Version 2)
Quarter: 2021Q2

REPORT INFORMATION
  Report Type: Spontaneous
  Country: US (occurrence: US)
  Receive Date: 20210513
  Receipt Date: 20210520
  Transmission Date: 20210717
  Serious: No
  Sender: FDA-Public Use
  Company Number: US-BAYER-2021-140505

PATIENT
  Age: 73 Year
  Sex: Female

DRUGS (6)
  1. CLARITIN [Suspect]
     Active Substance: LORATADINE
     Indication: SNEEZING
  2. CLARITIN [Suspect]
     Active Substance: LORATADINE
     Indication: RHINORRHOEA
  3. CLARITIN [Suspect]
     Active Substance: LORATADINE
     Indication: HYPERSENSITIVITY
     Dosage: 1 DF, QD
     Route: 048
  4. CLARITIN [Concomitant]
     Active Substance: LORATADINE
  5. FLUTICASONE PROPIONATE. [Concomitant]
     Active Substance: FLUTICASONE PROPIONATE
  6. CLARITIN [Suspect]
     Active Substance: LORATADINE
     Indication: NASOPHARYNGITIS
     Dosage: 1 DF, BID

REACTIONS (3)
  - Product solubility abnormal [None]
  - Extra dose administered [None]
  - Drug ineffective [None]
